FAERS Safety Report 8534824-6 (Version None)
Quarter: 2012Q3

REPORT INFORMATION
  Report Type: 
  Country: None (occurrence: None)
  Receive Date: 20120724
  Receipt Date: 20120711
  Transmission Date: 20120928
  Serious: Yes (Hospitalization, Other)
  Sender: FDA-Public Use
  Company Number: US-009507513-1203USA01077

PATIENT

DRUGS (3)
  1. FOSAMAX [Suspect]
     Indication: OSTEOPOROSIS
     Dosage: 10 MG, QD
     Route: 048
     Dates: start: 19991201, end: 20071201
  2. FOSAMAX [Suspect]
     Dosage: 70 MG, QW
     Dates: start: 19991201, end: 20071201
  3. FOSAMAX [Suspect]
     Dosage: 70 MG, UNK
     Dates: start: 20070514, end: 20071113

REACTIONS (40)
  - TOOTH EXTRACTION [None]
  - PLEURAL EFFUSION [None]
  - RHINITIS PERENNIAL [None]
  - HAEMORRHOIDS [None]
  - DEVICE FAILURE [None]
  - COLITIS [None]
  - HYSTERECTOMY [None]
  - SEPSIS [None]
  - PNEUMONIA ASPIRATION [None]
  - ASTHMA [None]
  - ASPIRATION [None]
  - POLYMYALGIA RHEUMATICA [None]
  - BRONCHITIS CHRONIC [None]
  - LIMB INJURY [None]
  - TRAUMATIC HAEMATOMA [None]
  - MITRAL VALVE PROLAPSE [None]
  - BONE DISORDER [None]
  - HYPERLIPIDAEMIA [None]
  - HYPOTHYROIDISM [None]
  - MASTECTOMY [None]
  - URINARY TRACT INFECTION [None]
  - FEMUR FRACTURE [None]
  - DYSPHAGIA [None]
  - ALLERGIC RESPIRATORY SYMPTOM [None]
  - GAIT DISTURBANCE [None]
  - PAIN [None]
  - PAIN IN EXTREMITY [None]
  - NON-CARDIAC CHEST PAIN [None]
  - PNEUMONIA [None]
  - BREAST LUMP REMOVAL [None]
  - RESPIRATORY MONILIASIS [None]
  - RIB FRACTURE [None]
  - CHRONIC OBSTRUCTIVE PULMONARY DISEASE [None]
  - PYREXIA [None]
  - WHITE BLOOD CELL COUNT INCREASED [None]
  - ADVERSE EVENT [None]
  - EXPLORATIVE LAPAROTOMY [None]
  - FALL [None]
  - BRONCHOMALACIA [None]
  - DECUBITUS ULCER [None]
